FAERS Safety Report 4378092-8 (Version None)
Quarter: 2004Q2

REPORT INFORMATION
  Report Type: 
  Country: None (occurrence: None)
  Receive Date: 20040614
  Receipt Date: 20040602
  Transmission Date: 20050107
  Serious: Yes (Hospitalization)
  Sender: FDA-Public Use
  Company Number: 2004UW11487

PATIENT
  Age: 65 Year
  Sex: Male

DRUGS (4)
  1. CRESTOR [Suspect]
     Dosage: 10 MG PO
     Route: 048
     Dates: start: 20030901, end: 20040308
  2. DIABETA [Concomitant]
  3. ALANTOS INSULIN [Concomitant]
  4. ZESTRIL [Concomitant]

REACTIONS (1)
  - CHOLECYSTITIS ACUTE [None]
